FAERS Safety Report 15403276 (Version 1)
Quarter: 2018Q3

REPORT INFORMATION
  Report Type: Spontaneous
  Country: US (occurrence: US)
  Receive Date: 20180919
  Receipt Date: 20180919
  Transmission Date: 20181010
  Serious: No
  Sender: FDA-Public Use
  Company Number: US-BAYER-2018-167085

PATIENT
  Age: 42 Year
  Sex: Male
  Weight: 133.79 kg

DRUGS (4)
  1. LORTAB [Concomitant]
     Active Substance: ACETAMINOPHEN\HYDROCODONE BITARTRATE
     Indication: PAIN
     Dosage: UNK
  2. TRAMADOL. [Concomitant]
     Active Substance: TRAMADOL
     Indication: PAIN
     Dosage: UNK
  3. ALEVE [Suspect]
     Active Substance: NAPROXEN SODIUM
     Indication: PAIN
     Dosage: 2 DF, PRN
     Route: 048
  4. BAYER ASPIRIN [Suspect]
     Active Substance: ASPIRIN
     Dosage: UNK
     Route: 048

REACTIONS (5)
  - Drug hypersensitivity [Recovered/Resolved]
  - Dyspnoea [Unknown]
  - Anxiety [Unknown]
  - Rash papular [Recovered/Resolved]
  - Feeling jittery [Unknown]
